FAERS Safety Report 15819091 (Version 1)
Quarter: 2019Q1

REPORT INFORMATION
  Report Type: Spontaneous
  Country: US (occurrence: US)
  Receive Date: 20190114
  Receipt Date: 20190114
  Transmission Date: 20190417
  Serious: No
  Sender: FDA-Public Use
  Company Number: US-ROCHE-2129700

PATIENT
  Sex: Male

DRUGS (1)
  1. NUTROPIN AQ [Suspect]
     Active Substance: SOMATROPIN
     Indication: HYPOPITUITARISM
     Dosage: DAILY; CURRENT?10MG/2ML
     Route: 058
     Dates: start: 20180316

REACTIONS (2)
  - Burning sensation [Unknown]
  - Injection site reaction [Unknown]
